FAERS Safety Report 7627230-X (Version None)
Quarter: 2011Q3

REPORT INFORMATION
  Report Type: 
  Country: None (occurrence: None)
  Receive Date: 20110721
  Receipt Date: 20110707
  Transmission Date: 20111222
  Serious: Yes (Other)
  Sender: FDA-Public Use
  Company Number: PHHY2010MX65211

PATIENT
  Sex: Female

DRUGS (3)
  1. DIOVAN HCT [Suspect]
     Indication: HYPERTENSION
     Dosage: 1 DF, 80 MG VALS AND 12.5 MG HYDR
     Dates: start: 20040915
  2. CORTISONE ACETATE [Concomitant]
  3. INTERFERON [Concomitant]

REACTIONS (7)
  - FALL [None]
  - DEMYELINATION [None]
  - BALANCE DISORDER [None]
  - MULTIPLE SCLEROSIS RELAPSE [None]
  - CONCOMITANT DISEASE PROGRESSION [None]
  - DIZZINESS [None]
  - GAIT DISTURBANCE [None]
